FAERS Safety Report 15425246 (Version 1)
Quarter: 2018Q3

REPORT INFORMATION
  Report Type: Spontaneous
  Country: US (occurrence: US)
  Receive Date: 20180925
  Receipt Date: 20180925
  Transmission Date: 20181010
  Serious: Yes (Other)
  Sender: FDA-Public Use
  Company Number: US-PFIZER INC-2018383778

PATIENT

DRUGS (1)
  1. VANCOMYCIN HCL [Suspect]
     Active Substance: VANCOMYCIN HYDROCHLORIDE
     Indication: IRRIGATION THERAPY
     Dosage: 10 MG, UNK (10 MG IN 0.2 ML ADDED TO 500 ML BSS BOTTLE, INTRACAMERAL)

REACTIONS (1)
  - Retinal vasculitis [Recovered/Resolved]
